FAERS Safety Report 20136072 (Version 1)
Quarter: 2021Q4

REPORT INFORMATION
  Report Type: Spontaneous
  Country: IT (occurrence: IT)
  Receive Date: 20211201
  Receipt Date: 20211201
  Transmission Date: 20220303
  Serious: Yes (Hospitalization, Other)
  Sender: FDA-Public Use
  Company Number: IT-ABBVIE-21K-083-4179522-00

PATIENT
  Age: 38 Year
  Sex: Female

DRUGS (3)
  1. VALPROATE SODIUM [Suspect]
     Active Substance: VALPROATE SODIUM
     Indication: Mental disorder
     Route: 048
     Dates: start: 20200805, end: 20200805
  2. DELORAZEPAM [Suspect]
     Active Substance: DELORAZEPAM
     Indication: Mental disorder
     Route: 065
     Dates: start: 20200805, end: 20200805
  3. CARIPRAZINE [Suspect]
     Active Substance: CARIPRAZINE
     Indication: Mental disorder
     Route: 048
     Dates: start: 20200805, end: 20200805

REACTIONS (4)
  - Intentional overdose [Unknown]
  - Suicide attempt [Recovering/Resolving]
  - Bradykinesia [Recovering/Resolving]
  - Nausea [Recovering/Resolving]

NARRATIVE: CASE EVENT DATE: 20200805
